FAERS Safety Report 6915627-2 (Version None)
Quarter: 2010Q3

REPORT INFORMATION
  Report Type: 
  Country: None (occurrence: None)
  Receive Date: 20100810
  Receipt Date: 20100503
  Transmission Date: 20110219
  Serious: Yes (Other)
  Sender: FDA-Public Use
  Company Number: CN-RANBAXY-2010RR-33207

PATIENT

DRUGS (1)
  1. PHENOBARBITAL [Suspect]
     Dosage: UNK
     Route: 065

REACTIONS (2)
  - DRUG RASH WITH EOSINOPHILIA AND SYSTEMIC SYMPTOMS [None]
  - HEPATITIS A [None]
